FAERS Safety Report 15723535 (Version 1)
Quarter: 2018Q4

REPORT INFORMATION
  Report Type: Spontaneous
  Country: US (occurrence: US)
  Receive Date: 20181214
  Receipt Date: 20181214
  Transmission Date: 20190205
  Serious: Yes (Other)
  Sender: FDA-Public Use
  Company Number: US-BAYER-2018-232241

PATIENT
  Age: 82 Year
  Sex: Female

DRUGS (1)
  1. BETASERON [Suspect]
     Active Substance: INTERFERON BETA-1B
     Dosage: 0.3 MG
     Route: 058
     Dates: start: 19940101

REACTIONS (4)
  - Ammonia decreased [None]
  - Urinary tract infection [None]
  - Chronic kidney disease [None]
  - Blood potassium decreased [None]

NARRATIVE: CASE EVENT DATE: 20181210
